FAERS Safety Report 7335509-4 (Version None)
Quarter: 2011Q1

REPORT INFORMATION
  Report Type: 
  Country: None (occurrence: None)
  Receive Date: 20110301
  Receipt Date: 20110301
  Transmission Date: 20110831
  Serious: Yes (Hospitalization)
  Sender: FDA-Public Use
  Company Number: None

PATIENT
  Age: 67 Year
  Sex: Female
  Weight: 126 kg

DRUGS (4)
  1. ATROVENT [Concomitant]
  2. SOLU-MEDROL [Concomitant]
  3. LEVAQUIN [Suspect]
     Indication: BRONCHITIS
     Dosage: 500 MG ONCE IV
     Route: 042
     Dates: start: 20100531
  4. ALBUTEROL [Concomitant]

REACTIONS (2)
  - VENTRICULAR TACHYCARDIA [None]
  - INFUSION RELATED REACTION [None]
